FAERS Safety Report 8084170-2 (Version None)
Quarter: 2012Q1

REPORT INFORMATION
  Report Type: 
  Country: None (occurrence: None)
  Receive Date: 20120128
  Receipt Date: 20110119
  Transmission Date: 20120608
  Serious: No
  Sender: FDA-Public Use
  Company Number: US-ABBOTT-11P-163-0699498-00

PATIENT
  Age: 30 Year
  Sex: Female

DRUGS (4)
  1. CELEXA [Concomitant]
     Indication: PRODUCT USED FOR UNKNOWN INDICATION
  2. ATIVAN [Concomitant]
     Indication: ANXIETY
  3. BIRTH CONTROL PILL [Concomitant]
     Indication: CONTRACEPTION
  4. HUMIRA [Suspect]
     Indication: CROHN'S DISEASE
     Dates: start: 20101101

REACTIONS (2)
  - URTICARIA [None]
  - INJECTION SITE NODULE [None]
